FAERS Safety Report 11563585 (Version 1)
Quarter: 2015Q3

REPORT INFORMATION
  Report Type: Spontaneous
  Country: US (occurrence: US)
  Receive Date: 20150928
  Receipt Date: 20150928
  Transmission Date: 20151125
  Serious: No
  Sender: FDA-Public Use
  Company Number: US-ACTAVIS-2014-28449

PATIENT
  Sex: Female
  Weight: 81.63 kg

DRUGS (4)
  1. ZENPEP [Suspect]
     Active Substance: PANCRELIPASE\PANCRELIPASE AMYLASE\PANCRELIPASE LIPASE\PANCRELIPASE PROTEASE
     Indication: DYSPEPSIA
     Dosage: 50000 USP WITH EACH MEAL
     Route: 048
     Dates: start: 2014, end: 20141118
  2. ZENPEP [Suspect]
     Active Substance: PANCRELIPASE\PANCRELIPASE AMYLASE\PANCRELIPASE LIPASE\PANCRELIPASE PROTEASE
     Indication: ABDOMINAL DISTENSION
  3. LACTULOSE. [Concomitant]
     Active Substance: LACTULOSE
     Indication: CONSTIPATION
     Dosage: UNK
     Route: 048
  4. ZENPEP [Suspect]
     Active Substance: PANCRELIPASE\PANCRELIPASE AMYLASE\PANCRELIPASE LIPASE\PANCRELIPASE PROTEASE
     Indication: ABDOMINAL DISCOMFORT

REACTIONS (7)
  - Off label use [Recovered/Resolved]
  - Constipation [Recovered/Resolved]
  - Arthralgia [Recovered/Resolved]
  - Fibromyalgia [Recovered/Resolved]
  - Pain [Recovered/Resolved]
  - Dizziness [Recovered/Resolved]
  - Condition aggravated [Recovered/Resolved]

NARRATIVE: CASE EVENT DATE: 2014
